FAERS Safety Report 14918974 (Version 1)
Quarter: 2018Q2

REPORT INFORMATION
  Report Type: Spontaneous
  Country: US (occurrence: US)
  Receive Date: 20180521
  Receipt Date: 20180521
  Transmission Date: 20180711
  Serious: No
  Sender: FDA-Public Use
  Company Number: US-LEXICON PHARMACEUTICALS, INC-18-1606-00543

PATIENT
  Sex: Male

DRUGS (27)
  1. TELOTRISTAT ETHYL [Suspect]
     Active Substance: TELOTRISTAT ETHYL
     Indication: CARCINOID SYNDROME
     Route: 048
     Dates: start: 20180208
  2. OCTREOTIDE ACETATE. [Concomitant]
     Active Substance: OCTREOTIDE ACETATE
  3. NEXIUM [Concomitant]
     Active Substance: ESOMEPRAZOLE MAGNESIUM
  4. FLOMAX [Concomitant]
     Active Substance: TAMSULOSIN HYDROCHLORIDE
  5. IODINE. [Concomitant]
     Active Substance: IODINE
  6. COENZYME Q10 [Concomitant]
     Active Substance: UBIDECARENONE
  7. PRENATAL [Concomitant]
     Active Substance: VITAMINS
  8. SLEEP AID [Concomitant]
     Active Substance: DIPHENHYDRAMINE HYDROCHLORIDE\DOXYLAMINE SUCCINATE
  9. HYDROCORTISONE. [Concomitant]
     Active Substance: HYDROCORTISONE
  10. HYZAAR [Concomitant]
     Active Substance: HYDROCHLOROTHIAZIDE\LOSARTAN POTASSIUM
  11. AFINITOR [Concomitant]
     Active Substance: EVEROLIMUS
  12. ATORVASTATIN [Concomitant]
     Active Substance: ATORVASTATIN
  13. LAMICTAL [Concomitant]
     Active Substance: LAMOTRIGINE
  14. FLORA ASSIST [Concomitant]
  15. MS CONTIN [Concomitant]
     Active Substance: MORPHINE SULFATE
  16. CHOLESTYRAMINE. [Concomitant]
     Active Substance: CHOLESTYRAMINE
  17. NUX VOMICA [Concomitant]
  18. ARABINOGALACTAN [Concomitant]
  19. KEPPRA [Concomitant]
     Active Substance: LEVETIRACETAM
  20. SANDOSTATIN [Concomitant]
     Active Substance: OCTREOTIDE ACETATE
  21. MAGNESIUM [Concomitant]
     Active Substance: MAGNESIUM
  22. PROPRANOLOL [Concomitant]
     Active Substance: PROPRANOLOL HYDROCHLORIDE
  23. HYDROMORPHONE [Concomitant]
     Active Substance: HYDROMORPHONE
  24. METHOCARBAMOL. [Concomitant]
     Active Substance: METHOCARBAMOL
  25. GINGER. [Concomitant]
     Active Substance: GINGER
  26. VITAMIN D [Concomitant]
     Active Substance: CHOLECALCIFEROL
  27. ZOFRAN [Concomitant]
     Active Substance: ONDANSETRON HYDROCHLORIDE

REACTIONS (2)
  - Diarrhoea [Recovered/Resolved]
  - Stomatitis [Unknown]

NARRATIVE: CASE EVENT DATE: 2018
